FAERS Safety Report 7425527-X (Version None)
Quarter: 2011Q2

REPORT INFORMATION
  Report Type: 
  Country: None (occurrence: None)
  Receive Date: 20110420
  Receipt Date: 20110411
  Transmission Date: 20111010
  Serious: Yes (Other)
  Sender: FDA-Public Use
  Company Number: BR-B.I. PHARMACEUTICALS,INC./RIDGEFIELD-2011-BR-00357BR

PATIENT
  Sex: Female

DRUGS (1)
  1. ATENSINA [Suspect]

REACTIONS (1)
  - HYPERTENSION [None]
